FAERS Safety Report 6201887-2 (Version None)
Quarter: 2009Q2

REPORT INFORMATION
  Report Type: 
  Country: None (occurrence: None)
  Receive Date: 20090526
  Receipt Date: 20090519
  Transmission Date: 20091009
  Serious: Yes (Hospitalization)
  Sender: FDA-Public Use
  Company Number: US-PFIZER INC-2005057842

PATIENT
  Sex: Male
  Weight: 59.42 kg

DRUGS (12)
  1. MARAVIROC [Suspect]
     Indication: HIV TEST POSITIVE
     Dosage: UNK
     Route: 048
     Dates: start: 20050324, end: 20050614
  2. ENFUVIRTIDE [Concomitant]
     Route: 058
     Dates: start: 20050324
  3. TENOFOVIR DISOPROXIL FUMARATE [Concomitant]
     Route: 048
     Dates: start: 20050324
  4. DIDANOSINE [Concomitant]
     Route: 048
     Dates: start: 20050324
  5. DAPSONE [Concomitant]
     Route: 048
     Dates: start: 20041217
  6. OXYCODONE HCL [Concomitant]
     Route: 048
     Dates: start: 20040922
  7. FLUCONAZOLE [Concomitant]
     Route: 048
     Dates: start: 20040423
  8. GABAPENTIN [Concomitant]
     Route: 048
     Dates: start: 20000515
  9. ESOMEPRAZOLE MAGNESIUM [Concomitant]
     Route: 048
     Dates: start: 20040617
  10. LEVOTHYROXINE SODIUM [Concomitant]
     Route: 048
     Dates: start: 20021025
  11. EPOGEN [Concomitant]
     Route: 058
     Dates: start: 20040617
  12. VORICONAZOLE [Concomitant]
     Route: 048
     Dates: start: 20050413

REACTIONS (2)
  - DEHYDRATION [None]
  - OESOPHAGEAL CANDIDIASIS [None]
